FAERS Safety Report 6965143-7 (Version None)
Quarter: 2010Q3

REPORT INFORMATION
  Report Type: 
  Country: None (occurrence: None)
  Receive Date: 20100903
  Receipt Date: 20100825
  Transmission Date: 20110219
  Serious: Yes (Hospitalization)
  Sender: FDA-Public Use
  Company Number: DE-ASTRAZENECA-2010SE31544

PATIENT
  Sex: Male

DRUGS (8)
  1. SEROQUEL [Suspect]
     Route: 048
     Dates: start: 20090401
  2. SEROQUEL [Suspect]
     Route: 048
  3. METOHEXAL [Concomitant]
  4. IBUPROFEN [Concomitant]
  5. TOREM [Concomitant]
  6. BIPRETERAX N [Concomitant]
  7. TRUXAL [Concomitant]
     Dates: start: 20090401
  8. LYRICA [Concomitant]
     Dates: start: 20090401

REACTIONS (4)
  - ARTHRALGIA [None]
  - DYSPNOEA [None]
  - OEDEMA [None]
  - WEIGHT INCREASED [None]
